FAERS Safety Report 5060868-5 (Version None)
Quarter: 2006Q2

REPORT INFORMATION
  Report Type: 
  Country: None (occurrence: None)
  Receive Date: 20060630
  Receipt Date: 20050719
  Transmission Date: 20061013
  Serious: Yes (Hospitalization)
  Sender: FDA-Public Use
  Company Number: 411467

PATIENT
  Age: 37 Year
  Sex: Male

DRUGS (2)
  1. CELLCEPT [Suspect]
     Indication: DRUG USE FOR UNKNOWN INDICATION
     Dosage: 250 MG 2 PER DAY
  2. REBIF [Suspect]
     Indication: MULTIPLE SCLEROSIS
     Dosage: 44 MCG 3 PER WEEK SUBCUTANEOUS
     Route: 058
     Dates: start: 20050405

REACTIONS (4)
  - HEPATIC ENZYME INCREASED [None]
  - MOUTH HAEMORRHAGE [None]
  - MOUTH INJURY [None]
  - THROMBOCYTOPENIA [None]
